APPROVED DRUG PRODUCT: ANTEPAR
Active Ingredient: PIPERAZINE CITRATE
Strength: EQ 500MG BASE
Dosage Form/Route: TABLET;ORAL
Application: N009102 | Product #003
Applicant: GLAXOSMITHKLINE
Approved: Approved Prior to Jan 1, 1982 | RLD: No | RS: No | Type: DISCN